FAERS Safety Report 6199386-X (Version None)
Quarter: 2009Q2

REPORT INFORMATION
  Report Type: 
  Country: None (occurrence: None)
  Receive Date: 20090520
  Receipt Date: 20090520
  Transmission Date: 20091009
  Serious: Yes (Hospitalization)
  Sender: FDA-Public Use
  Company Number: None

PATIENT
  Sex: Female
  Weight: 67 kg

DRUGS (3)
  1. FLUOROURACIL [Suspect]
     Dosage: 14322 MG
  2. LEUCOVORIN CALCIUM [Suspect]
     Dosage: 2046 MG
  3. ELOXATIN [Suspect]
     Dosage: 435 MG

REACTIONS (1)
  - NAUSEA [None]
